FAERS Safety Report 7183441-1 (Version None)
Quarter: 2010Q4

REPORT INFORMATION
  Report Type: 
  Country: None (occurrence: None)
  Receive Date: 20101222
  Receipt Date: 20101213
  Transmission Date: 20110411
  Serious: Yes (Other)
  Sender: FDA-Public Use
  Company Number: GB-GENZYME-THYM-1002040

PATIENT

DRUGS (1)
  1. THYMOGLOBULIN [Suspect]
     Route: 042

REACTIONS (1)
  - RASH [None]
